FAERS Safety Report 6862278-4 (Version None)
Quarter: 2010Q3

REPORT INFORMATION
  Report Type: 
  Country: None (occurrence: None)
  Receive Date: 20100721
  Receipt Date: 20100704
  Transmission Date: 20110219
  Serious: No
  Sender: FDA-Public Use
  Company Number: US-BAYER-201017710BCC

PATIENT
  Age: 77 Year
  Sex: Female
  Weight: 73 kg

DRUGS (4)
  1. ALEVE (CAPLET) [Suspect]
     Indication: SELF-INJURIOUS IDEATION
     Dosage: TOTAL DAILY DOSE: 1320 MG  UNIT DOSE: 220 MG
     Route: 048
     Dates: start: 20100704
  2. SIMVASTATIN [Concomitant]
     Route: 065
  3. BIOTIN [Concomitant]
     Route: 065
  4. FISH OIL [Concomitant]
     Route: 065

REACTIONS (1)
  - NO ADVERSE EVENT [None]
